FAERS Safety Report 7801585-5 (Version None)
Quarter: 2011Q4

REPORT INFORMATION
  Report Type: 
  Country: None (occurrence: None)
  Receive Date: 20111006
  Receipt Date: 20111006
  Transmission Date: 20120403
  Serious: Yes (Hospitalization)
  Sender: FDA-Public Use
  Company Number: None

PATIENT
  Age: 95 Year
  Sex: Male
  Weight: 65.4 kg

DRUGS (11)
  1. NORVASC [Concomitant]
  2. FUROSEMIDE [Concomitant]
  3. LOSARTAN POTASSIUM [Concomitant]
  4. ENALOPROL [Concomitant]
  5. LIPITOR [Concomitant]
  6. TOPROL-XL [Concomitant]
  7. MELOXICAM [Suspect]
     Indication: ARTHRITIS
     Dosage: 7.5MG DAILY PO RECENT
     Route: 048
  8. ALIPIRIDE [Concomitant]
  9. OMEPRAZOLE [Concomitant]
  10. DIGOXIN [Concomitant]
  11. NITROGLYCERIN [Concomitant]

REACTIONS (3)
  - ANAEMIA [None]
  - MELAENA [None]
  - DUODENAL ULCER [None]
